FAERS Safety Report 9749290 (Version 1)
Quarter: 2013Q4

REPORT INFORMATION
  Report Type: Spontaneous
  Country: US (occurrence: US)
  Receive Date: 20131212
  Receipt Date: 20131212
  Transmission Date: 20140711
  Serious: Yes (Other)
  Sender: FDA-Public Use
  Company Number: US-TEVA-393580USA

PATIENT
  Age: 30 Year
  Sex: Female
  Weight: 75.36 kg

DRUGS (3)
  1. PARAGARD 380A [Suspect]
     Indication: CONTRACEPTION
     Route: 015
     Dates: start: 20120524, end: 20130307
  2. VITAMIN D [Concomitant]
     Indication: NUTRITIONAL SUPPLEMENTATION
  3. IRON [Concomitant]
     Indication: NUTRITIONAL SUPPLEMENTATION

REACTIONS (3)
  - Complication of device removal [Not Recovered/Not Resolved]
  - Medical device complication [Recovered/Resolved]
  - Embedded device [Not Recovered/Not Resolved]
